FAERS Safety Report 12335808 (Version 1)
Quarter: 2016Q2

REPORT INFORMATION
  Report Type: Spontaneous
  Country: US (occurrence: US)
  Receive Date: 20160505
  Receipt Date: 20160505
  Transmission Date: 20160815
  Serious: No
  Sender: FDA-Public Use
  Company Number: US-BIOGEN-2016BI00208036

PATIENT
  Sex: Female

DRUGS (1)
  1. TECFIDERA [Suspect]
     Active Substance: DIMETHYL FUMARATE
     Indication: MULTIPLE SCLEROSIS
     Route: 065

REACTIONS (9)
  - Arthralgia [Unknown]
  - Peripheral swelling [Unknown]
  - Dysstasia [Unknown]
  - Weight increased [Unknown]
  - Swelling [Unknown]
  - Mobility decreased [Unknown]
  - Sleep disorder [Unknown]
  - Abdominal distension [Unknown]
  - Fluid retention [Unknown]
